FAERS Safety Report 9698995 (Version 2)
Quarter: 2013Q4

REPORT INFORMATION
  Report Type: Spontaneous
  Country: US (occurrence: None)
  Receive Date: 20131118
  Receipt Date: 20131127
  Transmission Date: 20140711
  Serious: No
  Sender: FDA-Public Use
  Company Number: 2013P1020900

PATIENT
  Age: 35 Year
  Sex: Female

DRUGS (1)
  1. ISOTRETINOIN [Suspect]
     Dates: start: 201305, end: 201307

REACTIONS (2)
  - Pregnancy [None]
  - Maternal exposure before pregnancy [None]
